FAERS Safety Report 6243154-7 (Version None)
Quarter: 2009Q2

REPORT INFORMATION
  Report Type: 
  Country: None (occurrence: None)
  Receive Date: 20090622
  Receipt Date: 20090622
  Transmission Date: 20091009
  Serious: No
  Sender: FDA-Public Use
  Company Number: None

PATIENT
  Age: 39 Year
  Sex: Male

DRUGS (1)
  1. ZICAM [Suspect]
     Dosage: 2 OR 3/08 PRODUCT PUMPED 1 X IN EACH NOSTRIL YEARS
     Dates: end: 20090101

REACTIONS (2)
  - AGEUSIA [None]
  - ANOSMIA [None]
